FAERS Safety Report 7253689-6 (Version None)
Quarter: 2011Q1

REPORT INFORMATION
  Report Type: 
  Country: None (occurrence: None)
  Receive Date: 20110129
  Receipt Date: 20100319
  Transmission Date: 20110831
  Serious: No
  Sender: FDA-Public Use
  Company Number: US-ABBOTT-10P-163-0623379-00

PATIENT
  Sex: Male
  Weight: 118.04 kg

DRUGS (7)
  1. HUMIRA [Suspect]
     Indication: PSORIASIS
     Dates: start: 20100120
  2. LEVOTHYROXINE SODIUM [Concomitant]
     Indication: HYPOTHYROIDISM
  3. DIVALPROEX SODIUM [Concomitant]
     Indication: PRODUCT USED FOR UNKNOWN INDICATION
  4. CLOBEX [Concomitant]
     Indication: PSORIASIS
     Route: 061
  5. AVALIDE [Concomitant]
     Indication: HYPERTENSION
  6. NIASPAN [Concomitant]
     Indication: HIGH DENSITY LIPOPROTEIN DECREASED
  7. TRICOR [Concomitant]
     Indication: BLOOD CHOLESTEROL INCREASED

REACTIONS (2)
  - ERYTHEMA [None]
  - INJECTION SITE HAEMATOMA [None]
